FAERS Safety Report 8826524 (Version 1)
Quarter: 2012Q4

REPORT INFORMATION
  Report Type: 
  Country: IT (occurrence: IT)
  Receive Date: 20121007
  Receipt Date: 20121007
  Transmission Date: 20130627
  Serious: Yes (Other)
  Sender: FDA-Public Use
  Company Number: IT-MYLANLABS-2012S1020118

PATIENT
  Age: 70 Year
  Sex: Female

DRUGS (8)
  1. LOSARTAN [Suspect]
     Indication: PRODUCT USED FOR UNKNOWN INDICATION
     Route: 048
     Dates: start: 20120101, end: 20120910
  2. TRIAZOLAM [Suspect]
     Indication: PRODUCT USED FOR UNKNOWN INDICATION
     Route: 048
     Dates: start: 20120101, end: 20120910
  3. LERCANIDIPINE [Suspect]
     Indication: PRODUCT USED FOR UNKNOWN INDICATION
     Route: 048
     Dates: start: 20120101, end: 20120910
  4. ATENOLOL [Suspect]
     Indication: PRODUCT USED FOR UNKNOWN INDICATION
     Route: 048
     Dates: start: 20120101, end: 20120910
  5. CARDIOASPIRIN [Concomitant]
     Indication: PRODUCT USED FOR UNKNOWN INDICATION
  6. TORVAST [Concomitant]
     Indication: PRODUCT USED FOR UNKNOWN INDICATION
  7. OMEPRAZOLE [Concomitant]
     Indication: PRODUCT USED FOR UNKNOWN INDICATION
  8. AMOXICILLIN + CLAVULANIC ACID [Concomitant]
     Indication: PRODUCT USED FOR UNKNOWN INDICATION

REACTIONS (6)
  - Hyperhidrosis [Recovered/Resolved]
  - Presyncope [Recovered/Resolved]
  - Hot flush [Recovered/Resolved]
  - Tooth abscess [Unknown]
  - Blood glucose increased [Unknown]
  - Syncope [Recovered/Resolved]
